FAERS Safety Report 8167936 (Version 2)
Quarter: 2015Q4

REPORT INFORMATION
  Report Type: Spontaneous
  Country: ZA (occurrence: ZA)
  Receive Date: 20111004
  Receipt Date: 20151103
  Transmission Date: 20160305
  Serious: Yes (Other)
  Sender: FDA-Public Use
  Company Number: PHHY2011ZA86574

PATIENT
  Sex: Female

DRUGS (2)
  1. ACLASTA [Suspect]
     Active Substance: ZOLEDRONIC ACID
     Indication: OSTEOPOROSIS
     Dosage: 5MG/100ML, ONCE A YEAR
     Route: 065
     Dates: start: 201009
  2. ACLASTA [Suspect]
     Active Substance: ZOLEDRONIC ACID
     Dosage: 5MG/100ML, ONCE A YEAR
     Route: 065
     Dates: start: 20151012

REACTIONS (2)
  - Cystitis [Unknown]
  - Escherichia infection [Unknown]
